FAERS Safety Report 22135408 (Version 2)
Quarter: 2023Q2

REPORT INFORMATION
  Report Type: Spontaneous
  Country: US (occurrence: None)
  Receive Date: 20230324
  Receipt Date: 20230426
  Transmission Date: 20230722
  Serious: Yes (Hospitalization)
  Sender: FDA-Public Use
  Company Number: US-ROCHE-3314987

PATIENT
  Age: 23 Year
  Sex: Female
  Weight: 52.8 kg

DRUGS (19)
  1. XOLAIR [Suspect]
     Active Substance: OMALIZUMAB
     Indication: Urticaria chronic
     Dosage: STRENGTH 150 MG/ML, LAST XOLAIR DOSE WAS GIVEN 2 DAYS AGO ON 18-APR-2023
     Route: 058
     Dates: start: 202102
  2. XOLAIR [Suspect]
     Active Substance: OMALIZUMAB
  3. XOLAIR [Suspect]
     Active Substance: OMALIZUMAB
  4. RITUXAN [Suspect]
     Active Substance: RITUXIMAB
     Indication: Autoimmune disorder
     Route: 041
     Dates: start: 20220526
  5. ACTEMRA [Suspect]
     Active Substance: TOCILIZUMAB
     Indication: Product used for unknown indication
     Route: 042
     Dates: start: 20220526
  6. ZYRTEC [Concomitant]
     Active Substance: CETIRIZINE HYDROCHLORIDE
  7. KLONOPIN [Concomitant]
     Active Substance: CLONAZEPAM
  8. BENADRYL [Concomitant]
     Active Substance: DIPHENHYDRAMINE HYDROCHLORIDE
  9. DOXEPIN [Concomitant]
     Active Substance: DOXEPIN
  10. PEPCID [Concomitant]
     Active Substance: FAMOTIDINE
  11. EMEND [Concomitant]
     Active Substance: APREPITANT
  12. GRANISETRON [Concomitant]
     Active Substance: GRANISETRON
  13. HUMAN IMMUNOGLOBULIN G [Concomitant]
     Active Substance: HUMAN IMMUNOGLOBULIN G
  14. VENOFER [Concomitant]
     Active Substance: IRON SUCROSE
  15. MELATONIN [Concomitant]
     Active Substance: MELATONIN
  16. PROTONIX [Concomitant]
     Active Substance: PANTOPRAZOLE SODIUM
  17. PHENERGAN [Concomitant]
     Active Substance: PROMETHAZINE HYDROCHLORIDE
  18. MOTEGRITY [Concomitant]
     Active Substance: PRUCALOPRIDE SUCCINATE
  19. SENNA LEAF [Concomitant]
     Active Substance: SENNA LEAF

REACTIONS (3)
  - Cholelithiasis [Unknown]
  - Nausea [Unknown]
  - Abdominal pain [Unknown]

NARRATIVE: CASE EVENT DATE: 20230101
